FAERS Safety Report 18663149 (Version 4)
Quarter: 2022Q3

REPORT INFORMATION
  Report Type: Report from Study
  Country: US (occurrence: US)
  Receive Date: 20201224
  Receipt Date: 20220708
  Transmission Date: 20221027
  Serious: Yes (Death, Hospitalization, Other)
  Sender: FDA-Public Use
  Company Number: US-TAKEDA-2020TUS059475

PATIENT
  Age: 95 Year
  Sex: Female
  Weight: 72.109 kg

DRUGS (14)
  1. HUMAN IMMUNOGLOBULIN G [Suspect]
     Active Substance: HUMAN IMMUNOGLOBULIN G
     Indication: Chronic inflammatory demyelinating polyradiculoneuropathy
     Dosage: 30 GRAM, Q4WEEKS
     Route: 042
     Dates: start: 20200921
  2. HUMAN IMMUNOGLOBULIN G [Suspect]
     Active Substance: HUMAN IMMUNOGLOBULIN G
     Dosage: 30 GRAM, Q4WEEKS
     Route: 042
     Dates: start: 20201029
  3. ACETAMINOPHEN [Concomitant]
     Active Substance: ACETAMINOPHEN
  4. DIPHENHYDRAMINE [Concomitant]
     Active Substance: DIPHENHYDRAMINE
  5. LIDOCAINE [Concomitant]
     Active Substance: LIDOCAINE
  6. SODIUM CHLORIDE [Concomitant]
     Active Substance: SODIUM CHLORIDE
  7. EPINEPHRINE [Concomitant]
     Active Substance: EPINEPHRINE
  8. ELIQUIS [Concomitant]
     Active Substance: APIXABAN
  9. SOTALOL [Concomitant]
     Active Substance: SOTALOL
  10. ROPINIROLE [Concomitant]
     Active Substance: ROPINIROLE
  11. TEMAZEPAM [Concomitant]
     Active Substance: TEMAZEPAM
  12. POTASSIUM [Concomitant]
     Active Substance: POTASSIUM
  13. PROBIOTIC [BIFIDOBACTERIUM INFANTIS;LACTOBACILLUS ACIDOPHILUS] [Concomitant]
  14. GLUCOSAMINE [Concomitant]
     Active Substance: GLUCOSAMINE

REACTIONS (4)
  - Death [Fatal]
  - Hospitalisation [Unknown]
  - Fall [Unknown]
  - SARS-CoV-2 test false positive [Unknown]

NARRATIVE: CASE EVENT DATE: 20220704
